FAERS Safety Report 8221736-0 (Version None)
Quarter: 2012Q1

REPORT INFORMATION
  Report Type: 
  Country: None (occurrence: None)
  Receive Date: 20120320
  Receipt Date: 20120305
  Transmission Date: 20120608
  Serious: Yes (Hospitalization, Other)
  Sender: FDA-Public Use
  Company Number: GB-WATSON-2012-04293

PATIENT
  Age: 51 Year
  Sex: Male

DRUGS (1)
  1. SIMVASTATIN [Suspect]
     Indication: HYPERCHOLESTEROLAEMIA
     Dosage: 40 MG
     Route: 065

REACTIONS (3)
  - MYALGIA [None]
  - FLANK PAIN [None]
  - THROMBOTIC THROMBOCYTOPENIC PURPURA [None]
